FAERS Safety Report 15977656 (Version 1)
Quarter: 2019Q1

REPORT INFORMATION
  Report Type: Report from Study
  Country: US (occurrence: US)
  Receive Date: 20190218
  Receipt Date: 20190218
  Transmission Date: 20190418
  Serious: No
  Sender: FDA-Public Use
  Company Number: PHEH2013US025194

PATIENT
  Age: 42 Year
  Sex: Female
  Weight: 94.79 kg

DRUGS (1)
  1. GILENYA [Suspect]
     Active Substance: FINGOLIMOD HYDROCHLORIDE
     Indication: MULTIPLE SCLEROSIS
     Dosage: 0.5 MG, QD
     Route: 048
     Dates: start: 20130909

REACTIONS (12)
  - Vomiting [Recovered/Resolved]
  - Arthritis [Unknown]
  - Mental disorder [Unknown]
  - Irritability [Recovering/Resolving]
  - Hypertonic bladder [Not Recovered/Not Resolved]
  - Heart rate decreased [Recovered/Resolved]
  - Pain [Recovering/Resolving]
  - Rash [Recovering/Resolving]
  - Eye disorder [Not Recovered/Not Resolved]
  - Herpes zoster [Recovered/Resolved]
  - Sensory disturbance [Unknown]
  - Insomnia [Recovering/Resolving]

NARRATIVE: CASE EVENT DATE: 20130909
